FAERS Safety Report 8108457-X (Version None)
Quarter: 2012Q1

REPORT INFORMATION
  Report Type: 
  Country: None (occurrence: None)
  Receive Date: 20120202
  Receipt Date: 20120131
  Transmission Date: 20120608
  Serious: Yes (Death)
  Sender: FDA-Public Use
  Company Number: PHEH2012US002092

PATIENT
  Sex: Female

DRUGS (1)
  1. ZOMETA [Suspect]
     Dosage: 4 MG EVERY 3 MONTH

REACTIONS (5)
  - METASTASES TO CENTRAL NERVOUS SYSTEM [None]
  - BREAST CANCER [None]
  - METASTASES TO LUNG [None]
  - METASTASES TO LIVER [None]
  - METASTASES TO BONE [None]
